FAERS Safety Report 12638029 (Version 2)
Quarter: 2017Q1

REPORT INFORMATION
  Report Type: Spontaneous
  Country: US (occurrence: US)
  Receive Date: 20160809
  Receipt Date: 20170209
  Transmission Date: 20170428
  Serious: No
  Sender: FDA-Public Use
  Company Number: US-SA-2016SA112500

PATIENT
  Age: 61 Year
  Sex: Male

DRUGS (2)
  1. PRALUENT [Suspect]
     Active Substance: ALIROCUMAB
     Route: 065
     Dates: start: 201606
  2. ALIROCUMAB PREFILLED PEN [Concomitant]
     Active Substance: ALIROCUMAB
     Dates: start: 201606

REACTIONS (7)
  - Pain in extremity [Unknown]
  - Muscle fatigue [Unknown]
  - Muscle spasms [Unknown]
  - Muscular weakness [Unknown]
  - Arthralgia [Unknown]
  - Muscular weakness [Unknown]
  - Sluggishness [Unknown]

NARRATIVE: CASE EVENT DATE: 20160606
